FAERS Safety Report 4738402-6 (Version None)
Quarter: 2005Q3

REPORT INFORMATION
  Report Type: 
  Country: None (occurrence: None)
  Receive Date: 20050809
  Receipt Date: 20050802
  Transmission Date: 20060218
  Serious: Yes (Other)
  Sender: FDA-Public Use
  Company Number: GB-GLAXOSMITHKLINE-B0389431A

PATIENT
  Age: 73 Year
  Sex: Female

DRUGS (4)
  1. VENTOLIN [Suspect]
     Route: 055
  2. AMLODIPINE [Concomitant]
  3. BECLOMETHASONE DIPROPIONATE [Concomitant]
  4. SALMETEROL [Concomitant]

REACTIONS (2)
  - CHOKING [None]
  - DYSPNOEA EXACERBATED [None]
